FAERS Safety Report 7740594-1 (Version None)
Quarter: 2011Q3

REPORT INFORMATION
  Report Type: 
  Country: None (occurrence: None)
  Receive Date: 20110909
  Receipt Date: 20110829
  Transmission Date: 20111222
  Serious: Yes (Hospitalization)
  Sender: FDA-Public Use
  Company Number: US-BAYER-201036917NA

PATIENT
  Age: 31 Year
  Sex: Female
  Weight: 108.84 kg

DRUGS (23)
  1. IMITREX [Concomitant]
     Dosage: 100 MG, UNK
     Route: 048
  2. YASMIN [Suspect]
     Indication: PREMENSTRUAL SYNDROME
  3. OXYCODONE HCL AND ACETAMINOPHEN [Concomitant]
     Dosage: 325 MG, QID
     Route: 048
     Dates: start: 20080923
  4. XANAX [Concomitant]
  5. YASMIN [Suspect]
     Indication: ACNE
  6. AUGMENTIN '125' [Concomitant]
     Route: 048
  7. OXYCODONE HCL AND ACETAMINOPHEN [Concomitant]
     Indication: PROCEDURAL PAIN
     Dosage: 325 MG, Q4HR
     Route: 048
     Dates: start: 20080923
  8. AZITHROMYCIN [Concomitant]
     Indication: BRONCHITIS
     Dosage: 250 MG, UNK
     Route: 048
     Dates: start: 20081009, end: 20081013
  9. YASMIN [Suspect]
     Indication: CONTRACEPTION
     Dosage: UNK
     Route: 048
     Dates: start: 20030101, end: 20080601
  10. ALPRAZOLAM [Concomitant]
     Indication: ANXIETY
     Dosage: UNK
     Route: 048
     Dates: start: 20070101
  11. DROSPIRENONE AND ETHINYL ESTRADIOL [Suspect]
     Indication: POLYCYSTIC OVARIES
  12. DROSPIRENONE AND ETHINYL ESTRADIOL [Suspect]
     Indication: PREMENSTRUAL SYNDROME
  13. PROMETHAZINE [Concomitant]
     Indication: KNEE OPERATION
     Dosage: 25 MG, UNK
     Route: 048
     Dates: start: 20080913, end: 20081001
  14. DROSPIRENONE AND ETHINYL ESTRADIOL [Suspect]
     Indication: CONTRACEPTION
     Dosage: UNK
     Route: 048
     Dates: start: 20080601, end: 20090901
  15. METFORMIN [Concomitant]
     Indication: POLYCYSTIC OVARIES
     Dosage: UNK
     Route: 048
     Dates: start: 20040101
  16. HYCODAN [Concomitant]
  17. PROPOXYPHENE HYDROCHLORIDE [Concomitant]
     Indication: PROCEDURAL PAIN
     Dosage: UNK UNK, PRN
     Route: 048
     Dates: start: 20081001, end: 20081101
  18. XYZAL [Concomitant]
  19. YASMIN [Suspect]
     Indication: POLYCYSTIC OVARIES
  20. DROSPIRENONE AND ETHINYL ESTRADIOL [Suspect]
     Indication: ACNE
  21. ASPIRIN [Concomitant]
     Indication: KNEE OPERATION
     Dosage: UNK UNK, QD
     Route: 048
  22. CEFTIN [Concomitant]
     Dosage: 500 MG, UNK
     Route: 048
  23. DOXYCYCLINE [Concomitant]
     Indication: BRONCHITIS
     Dosage: 100 MG, BID
     Route: 048
     Dates: start: 20081018, end: 20081028

REACTIONS (7)
  - PULMONARY EMBOLISM [None]
  - PAIN [None]
  - FATIGUE [None]
  - LUNG DISORDER [None]
  - DYSPNOEA [None]
  - RESPIRATORY TRACT CONGESTION [None]
  - UNEVALUABLE EVENT [None]
